FAERS Safety Report 19082641 (Version 1)
Quarter: 2021Q2

REPORT INFORMATION
  Report Type: Spontaneous
  Country: US (occurrence: US)
  Receive Date: 20210401
  Receipt Date: 20210401
  Transmission Date: 20210717
  Serious: Yes (Disabling, Other)
  Sender: FDA-Public Use
  Company Number: None

PATIENT
  Age: 63 Year
  Sex: Female
  Weight: 76.5 kg

DRUGS (11)
  1. NEURONTIN [Suspect]
     Active Substance: GABAPENTIN
     Indication: PAIN MANAGEMENT
     Dosage: ?          QUANTITY:1 TABLET(S);?
     Route: 048
     Dates: end: 20210401
  2. CENTRUM [Concomitant]
     Active Substance: VITAMINS
  3. VALTREX [Concomitant]
     Active Substance: VALACYCLOVIR HYDROCHLORIDE
  4. ALEVE [Concomitant]
     Active Substance: NAPROXEN SODIUM
  5. HYSOCMINE [Concomitant]
  6. KEFLEX [Concomitant]
     Active Substance: CEPHALEXIN
  7. LOPRESSOR [Concomitant]
     Active Substance: METOPROLOL TARTRATE
  8. CANE [Concomitant]
  9. PRILOSEC [Concomitant]
     Active Substance: OMEPRAZOLE MAGNESIUM
  10. HALCION [Concomitant]
     Active Substance: TRIAZOLAM
  11. TYLENOL [Concomitant]
     Active Substance: ACETAMINOPHEN

REACTIONS (25)
  - Injury [None]
  - Incoherent [None]
  - Ankle fracture [None]
  - Dysstasia [None]
  - Dysarthria [None]
  - Adrenocortical insufficiency acute [None]
  - Gastrointestinal disorder [None]
  - Crying [None]
  - Fall [None]
  - Anger [None]
  - Foot fracture [None]
  - Disorientation [None]
  - Impaired driving ability [None]
  - Illness [None]
  - Depression [None]
  - Wrist fracture [None]
  - Concussion [None]
  - Rib fracture [None]
  - Hand fracture [None]
  - Agitation [None]
  - Confusional state [None]
  - Anxiety [None]
  - Nerve injury [None]
  - Peroneal nerve palsy [None]
  - Pain in extremity [None]

NARRATIVE: CASE EVENT DATE: 20210324
